FAERS Safety Report 17735542 (Version 1)
Quarter: 2020Q2

REPORT INFORMATION
  Report Type: Spontaneous
  Country: US (occurrence: US)
  Receive Date: 20200501
  Receipt Date: 20200501
  Transmission Date: 20200714
  Serious: Yes (Other)
  Sender: FDA-Public Use
  Company Number: US-ANIPHARMA-2020-US-008683

PATIENT
  Age: 71 Year
  Sex: Female
  Weight: 56.25 kg

DRUGS (5)
  1. FASLODEX [Suspect]
     Active Substance: FULVESTRANT
     Dosage: INTRAMUSCULAR INJECTION OF 250 MG IN 5 CC AND SHE RECEIVES 2 AT A TIME
     Route: 030
     Dates: start: 20190826
  2. RECLAST [Concomitant]
     Active Substance: ZOLEDRONIC ACID
     Dosage: IV DOSE UNKNOWN. RECEIVES EVERY 3-4 MONTHS
     Route: 042
     Dates: start: 20190925
  3. ARIMIDEX [Suspect]
     Active Substance: ANASTROZOLE
     Indication: BREAST CANCER
     Dosage: 1MG A DAY
     Route: 048
     Dates: start: 2014, end: 2018
  4. AROMASIN [Suspect]
     Active Substance: EXEMESTANE
     Dosage: UNK
     Route: 065
     Dates: start: 2014, end: 2018
  5. IBRANCE [Suspect]
     Active Substance: PALBOCICLIB
     Dosage: 100 MG. TAKE ONE CAPSULE FOR 21 DAYS BY MOUTH. TAKE 1 WEEK OFF
     Route: 065
     Dates: start: 201908

REACTIONS (7)
  - Metastases to eye [Unknown]
  - Metastases to pelvis [Unknown]
  - Metastases to bone [Unknown]
  - Bone pain [Recovered/Resolved]
  - Retinopathy [Unknown]
  - Disease progression [Unknown]
  - Retinal vein occlusion [Unknown]

NARRATIVE: CASE EVENT DATE: 201903
